FAERS Safety Report 4492512-X (Version None)
Quarter: 2004Q4

REPORT INFORMATION
  Report Type: 
  Country: None (occurrence: None)
  Receive Date: 20041102
  Receipt Date: 20041102
  Transmission Date: 20050328
  Serious: Yes (Hospitalization)
  Sender: FDA-Public Use
  Company Number: None

PATIENT
  Age: 78 Year
  Sex: Male

DRUGS (10)
  1. GOODY'S POWDER [Suspect]
     Indication: BACK PAIN
     Dosage: 3-4 PACKETS DAILY ORAL
     Route: 048
     Dates: start: 20040428, end: 20040503
  2. ACETAMINOPHEN [Concomitant]
  3. METAMUCIL-2 [Concomitant]
  4. TERAZOSIN HCL [Concomitant]
  5. TRANITIDINE [Concomitant]
  6. NAPROXEN [Concomitant]
  7. HYDROCHLOROTHIAZIDE [Concomitant]
  8. ASPIRIN [Concomitant]
  9. FERROUS SULFATE TAB [Concomitant]
  10. MULTI-VITAMIN [Concomitant]

REACTIONS (7)
  - ASTHENIA [None]
  - BLOOD PRESSURE ABNORMAL [None]
  - FATIGUE [None]
  - HAEMATEMESIS [None]
  - HAEMATOCRIT DECREASED [None]
  - HAEMOGLOBIN DECREASED [None]
  - MELAENA [None]
